FAERS Safety Report 15375005 (Version 3)
Quarter: 2018Q3

REPORT INFORMATION
  Report Type: Spontaneous
  Country: ES (occurrence: ES)
  Receive Date: 20180912
  Receipt Date: 20180927
  Transmission Date: 20181010
  Serious: Yes (Hospitalization)
  Sender: FDA-Public Use
  Company Number: ES-ASTRAZENECA-2018SF15765

PATIENT
  Age: 55 Year
  Sex: Male
  Weight: 140 kg

DRUGS (6)
  1. XIGDUO XR [Suspect]
     Active Substance: DAPAGLIFLOZIN PROPANEDIOL\METFORMIN HYDROCHLORIDE
     Route: 048
  2. LOVIBON [Concomitant]
  3. BUDESONIDE. [Concomitant]
     Active Substance: BUDESONIDE
  4. ZALDIAR [Concomitant]
     Active Substance: ACETAMINOPHEN\TRAMADOL HYDROCHLORIDE
  5. CETIRIZINE [Concomitant]
     Active Substance: CETIRIZINE HYDROCHLORIDE
  6. ADIRO [Concomitant]
     Active Substance: ASPIRIN

REACTIONS (4)
  - Anaemia [Unknown]
  - Asthenia [Unknown]
  - Syncope [Unknown]
  - Hyponatraemia [Recovered/Resolved]

NARRATIVE: CASE EVENT DATE: 20180814
